FAERS Safety Report 4960966-8 (Version None)
Quarter: 2006Q2

REPORT INFORMATION
  Report Type: 
  Country: None (occurrence: None)
  Receive Date: 20060403
  Receipt Date: 20060303
  Transmission Date: 20061013
  Serious: Yes (Life-Threatening, Hospitalization, Disabling)
  Sender: FDA-Public Use
  Company Number: JP-SANOFI-SYNTHELABO-A01200601874

PATIENT
  Age: 931 Month
  Sex: Female
  Weight: 57.7 kg

DRUGS (9)
  1. MYSLEE [Suspect]
     Indication: INSOMNIA
     Dosage: 10 MG
     Route: 048
     Dates: start: 20060125, end: 20060223
  2. CARDENALIN [Concomitant]
     Indication: HYPERTENSION
     Dosage: 2 MG
     Route: 048
     Dates: start: 19990416, end: 20060223
  3. AMLODIN [Concomitant]
     Indication: HYPERTENSION
     Dosage: 5 MG
     Route: 048
     Dates: start: 19990319, end: 20060223
  4. SOLANAX [Concomitant]
     Indication: INSOMNIA
     Dosage: 0.4 MG
     Route: 048
     Dates: start: 19960524, end: 20060222
  5. EURODIN [Concomitant]
     Indication: INSOMNIA
     Dosage: 2 MG
     Route: 048
     Dates: start: 19960524, end: 20060222
  6. EXCELASE [Concomitant]
     Indication: GASTRIC CANCER
     Dosage: 1.2 G
     Route: 048
     Dates: start: 20051126, end: 20060223
  7. GASMOTIN [Concomitant]
     Indication: GASTRIC CANCER
     Dosage: 15 MG
     Route: 048
     Dates: start: 20051024, end: 20060223
  8. MAGMITT [Concomitant]
     Indication: GASTRIC CANCER
     Dosage: 990 MG
     Route: 048
     Dates: start: 20051205, end: 20060223
  9. DEPAS [Concomitant]
     Indication: RESTLESSNESS
     Dosage: 0.5 MG
     Route: 048
     Dates: start: 20051120, end: 20060222

REACTIONS (3)
  - HEPATIC FUNCTION ABNORMAL [None]
  - HEPATITIS [None]
  - JAUNDICE [None]
